FAERS Safety Report 10214126 (Version 1)
Quarter: 2014Q2

REPORT INFORMATION
  Report Type: Spontaneous
  Country: AR (occurrence: None)
  Receive Date: 20140530
  Receipt Date: 20140530
  Transmission Date: 20141212
  Serious: Yes (Other)
  Sender: FDA-Public Use
  Company Number: 2014AR00491

PATIENT
  Sex: 0

DRUGS (5)
  1. CARBOPLATIN [Suspect]
     Indication: RETINOBLASTOMA
     Dosage: ON DAY 1
  2. VINCRISTINE [Suspect]
     Indication: RETINOBLASTOMA
     Dosage: ON DAY 1
  3. ETOPOSIDE [Suspect]
     Indication: RETINOBLASTOMA
     Dosage: PER DAY, ON DAY 1 AND 2
  4. TOPOTECAN [Suspect]
     Indication: RETINOBLASTOMA
  5. EXTERNAL BEAM OPTICAL RADIOTHERAPY [Suspect]
     Indication: RETINOBLASTOMA
     Dosage: 45 GY UP TO THE CHIASM

REACTIONS (2)
  - Retinoblastoma [None]
  - Disease progression [None]
